FAERS Safety Report 5704522-2 (Version None)
Quarter: 2008Q2

REPORT INFORMATION
  Report Type: 
  Country: None (occurrence: None)
  Receive Date: 20080414
  Receipt Date: 20080404
  Transmission Date: 20081010
  Serious: Yes (Other)
  Sender: FDA-Public Use
  Company Number: ES-ALLERGAN-0803792US

PATIENT
  Age: 42 Year
  Sex: Female

DRUGS (7)
  1. DYSPORT [Suspect]
     Indication: MUSCLE SPASTICITY
     Dosage: 1000 UNITS, SINGLE
     Route: 030
  2. BACLOFEN [Concomitant]
     Indication: MUSCLE SPASTICITY
     Dosage: 75 MG, QD
  3. BACLOFEN [Concomitant]
     Indication: MUSCLE SPASMS
  4. GABAPENTIN [Concomitant]
     Indication: MUSCLE SPASTICITY
     Dosage: 1200 MG, QD
  5. GABAPENTIN [Concomitant]
     Indication: MUSCLE SPASMS
  6. DIACEPAM [Concomitant]
     Indication: MUSCLE SPASTICITY
     Dosage: 10 MG, QD
  7. DIACEPAM [Concomitant]
     Indication: MUSCLE SPASMS

REACTIONS (2)
  - DISCOMFORT [None]
  - STRABISMUS [None]
